FAERS Safety Report 23270578 (Version 1)
Quarter: 2023Q4

REPORT INFORMATION
  Report Type: Spontaneous
  Country: US (occurrence: US)
  Receive Date: 20231207
  Receipt Date: 20231207
  Transmission Date: 20240110
  Serious: Yes (Hospitalization, Other)
  Sender: FDA-Public Use
  Company Number: US-BRISTOL-MYERS SQUIBB COMPANY-2023-174145

PATIENT
  Age: 58 Year
  Sex: Male
  Weight: 101.6 kg

DRUGS (2)
  1. OPDIVO [Suspect]
     Active Substance: NIVOLUMAB
     Indication: Metastatic malignant melanoma
     Dosage: DOSE : 100 MG NIVO AND 300 MG IPI;     FREQ : UNKNOWN
     Route: 042
     Dates: start: 20231020
  2. YERVOY [Suspect]
     Active Substance: IPILIMUMAB
     Indication: Metastatic malignant melanoma
     Dosage: DOSE :300 MG IPI;     FREQ : UNKNOWN
     Route: 042
     Dates: start: 20231020

REACTIONS (3)
  - Paralysis [Recovering/Resolving]
  - Facial paralysis [Recovering/Resolving]
  - Off label use [Unknown]

NARRATIVE: CASE EVENT DATE: 20231101
